FAERS Safety Report 7595123-2 (Version None)
Quarter: 2011Q3

REPORT INFORMATION
  Report Type: 
  Country: None (occurrence: None)
  Receive Date: 20110707
  Receipt Date: 20110627
  Transmission Date: 20111222
  Serious: Yes (Hospitalization)
  Sender: FDA-Public Use
  Company Number: BR-GENENTECH-320898

PATIENT
  Sex: Female
  Weight: 33 kg

DRUGS (4)
  1. TOBRAMICINA [Concomitant]
     Indication: PRODUCT USED FOR UNKNOWN INDICATION
     Dosage: UNK
     Route: 055
  2. COLIMYCINE [Concomitant]
     Indication: PRODUCT USED FOR UNKNOWN INDICATION
     Dosage: UNK
     Route: 055
  3. PULMOZYME [Suspect]
     Indication: PRODUCT USED FOR UNKNOWN INDICATION
     Dosage: 2.5 MG, QAM
     Route: 065
     Dates: start: 20030101, end: 20110401
  4. CREON [Concomitant]
     Indication: PRODUCT USED FOR UNKNOWN INDICATION
     Dosage: UNK

REACTIONS (5)
  - RESPIRATORY TRACT CONGESTION [None]
  - SPUTUM CULTURE [None]
  - DEVICE BREAKAGE [None]
  - PYREXIA [None]
  - WEIGHT DECREASED [None]
